FAERS Safety Report 23243417 (Version 5)
Quarter: 2024Q1

REPORT INFORMATION
  Report Type: Spontaneous
  Country: US (occurrence: US)
  Receive Date: 20231130
  Receipt Date: 20240201
  Transmission Date: 20240409
  Serious: Yes (Hospitalization)
  Sender: FDA-Public Use
  Company Number: US-KARYOPHARM-2023KPT002014

PATIENT

DRUGS (28)
  1. XPOVIO [Suspect]
     Active Substance: SELINEXOR
     Indication: Plasma cell myeloma
     Dosage: 60 MG, WEEKLY
     Route: 048
     Dates: start: 20230803, end: 202310
  2. XPOVIO [Suspect]
     Active Substance: SELINEXOR
     Dosage: 60 MG, WEEKLY
     Route: 048
     Dates: start: 202310, end: 20231128
  3. XPOVIO [Suspect]
     Active Substance: SELINEXOR
     Dosage: 60 MG, WEEKLY
     Route: 048
     Dates: end: 202312
  4. ACYCLOVIR SODIUM [Concomitant]
     Active Substance: ACYCLOVIR SODIUM
  5. DEXAMETHASONE [Concomitant]
     Active Substance: DEXAMETHASONE
  6. FLUTICASONE [Concomitant]
     Active Substance: FLUTICASONE
  7. FUROSEMIDE [Concomitant]
     Active Substance: FUROSEMIDE
  8. HYDROCHLOROTHIAZIDE [Concomitant]
     Active Substance: HYDROCHLOROTHIAZIDE
  9. NORCO [Concomitant]
     Active Substance: ACETAMINOPHEN\HYDROCODONE BITARTRATE
  10. LORAZEPAM [Concomitant]
     Active Substance: LORAZEPAM
  11. LEVOTHYROXINE [Concomitant]
     Active Substance: LEVOTHYROXINE\LEVOTHYROXINE SODIUM
  12. OLANZAPINE [Concomitant]
     Active Substance: OLANZAPINE
  13. ONDANSETRON [Concomitant]
     Active Substance: ONDANSETRON
  14. RAMIPRIL [Concomitant]
     Active Substance: RAMIPRIL
  15. SERTRALINE [Concomitant]
     Active Substance: SERTRALINE HYDROCHLORIDE
  16. VELCADE [Concomitant]
     Active Substance: BORTEZOMIB
  17. SPIRIVA [Concomitant]
     Active Substance: TIOTROPIUM BROMIDE MONOHYDRATE
  18. PREGABALIN [Concomitant]
     Active Substance: PREGABALIN
  19. OPDIVO [Concomitant]
     Active Substance: NIVOLUMAB
  20. ALBUTEROL SULFATE [Concomitant]
     Active Substance: ALBUTEROL SULFATE
  21. ESOMEPRAZOLE [Concomitant]
     Active Substance: ESOMEPRAZOLE
  22. MACROBID [Concomitant]
     Active Substance: NITROFURANTOIN\NITROFURANTOIN MONOHYDRATE
  23. ACETAMINOPHEN [Concomitant]
     Active Substance: ACETAMINOPHEN
  24. ASPIRIN [Concomitant]
     Active Substance: ASPIRIN
  25. CETIRIZINE HYDROCHLORIDE [Concomitant]
     Active Substance: CETIRIZINE HYDROCHLORIDE
  26. DOCUSATE [Concomitant]
     Active Substance: DOCUSATE
  27. FAMOTIDINE [Concomitant]
     Active Substance: FAMOTIDINE
  28. SIMETHICONE (DIMETHICONE) [Concomitant]
     Active Substance: DIMETHICONE

REACTIONS (15)
  - Pyuria [Unknown]
  - Pericardial effusion [Unknown]
  - Pleural effusion [Unknown]
  - Cardiac failure congestive [Unknown]
  - Back pain [Not Recovered/Not Resolved]
  - Fall [Unknown]
  - Balance disorder [Unknown]
  - Hot flush [Unknown]
  - Neuropathy peripheral [Unknown]
  - Plasma cell myeloma [Unknown]
  - Fatigue [Unknown]
  - Dizziness [Not Recovered/Not Resolved]
  - Asthenia [Unknown]
  - Product dose omission issue [Unknown]
  - Drug ineffective [Unknown]

NARRATIVE: CASE EVENT DATE: 20230901
